FAERS Safety Report 23952170 (Version 1)
Quarter: 2024Q2

REPORT INFORMATION
  Report Type: Spontaneous
  Country: GB (occurrence: GB)
  Receive Date: 20240607
  Receipt Date: 20240607
  Transmission Date: 20240716
  Serious: Yes (Hospitalization, Other)
  Sender: FDA-Public Use
  Company Number: GB-MYLANLABS-2024M1051355

PATIENT
  Sex: Female

DRUGS (1)
  1. CLOZARIL [Suspect]
     Active Substance: CLOZAPINE
     Indication: Schizophrenia
     Dosage: UNK
     Route: 048
     Dates: start: 20230215, end: 202405

REACTIONS (3)
  - Hospitalisation [Unknown]
  - Electrocardiogram QT prolonged [Unknown]
  - Malaise [Unknown]

NARRATIVE: CASE EVENT DATE: 20240508
